FAERS Safety Report 4464270-6 (Version None)
Quarter: 2004Q4

REPORT INFORMATION
  Report Type: 
  Country: None (occurrence: None)
  Receive Date: 20041001
  Receipt Date: 20040922
  Transmission Date: 20050328
  Serious: Yes (Other)
  Sender: FDA-Public Use
  Company Number: PHEH2004US10262

PATIENT
  Age: 61 Year
  Sex: Female

DRUGS (4)
  1. MIACALCIN [Suspect]
     Dates: start: 20030701
  2. NEXIUM [Concomitant]
  3. AVALIDE [Concomitant]
  4. ZOCOR [Concomitant]

REACTIONS (2)
  - ALOPECIA [None]
  - SPINAL FUSION SURGERY [None]
